FAERS Safety Report 7589582-9 (Version None)
Quarter: 2011Q3

REPORT INFORMATION
  Report Type: 
  Country: None (occurrence: None)
  Receive Date: 20110705
  Receipt Date: 20110627
  Transmission Date: 20111222
  Serious: Yes (Death)
  Sender: FDA-Public Use
  Company Number: TW-ROCHE-786085

PATIENT
  Sex: Male

DRUGS (4)
  1. CISPLATIN [Suspect]
     Route: 065
  2. AVASTIN [Suspect]
     Indication: HEAD AND NECK CANCER
     Route: 042
     Dates: start: 20110601
  3. DOCETAXEL [Suspect]
     Route: 065
  4. FLUOROURACIL [Suspect]
     Route: 065

REACTIONS (2)
  - BACTERAEMIA [None]
  - OFF LABEL USE [None]
